FAERS Safety Report 10404312 (Version 1)
Quarter: 2014Q1

REPORT INFORMATION
  Report Type: Spontaneous
  Country: US (occurrence: None)
  Receive Date: 20140214
  Receipt Date: 20140214
  Transmission Date: 20141002
  Serious: No
  Sender: FDA-Public Use
  Company Number: A-NJ2014-93863

PATIENT
  Age: 64 Year
  Sex: Female

DRUGS (5)
  1. OPSUMIT [Suspect]
     Indication: PULMONARY HYPERTENSION
     Route: 048
  2. VELETRI [Suspect]
     Indication: PULMONARY HYPERTENSION
     Route: 041
  3. REMODULIN (TREPROSTINIL SODIUM) [Concomitant]
  4. REVATIO (SILDENAFIL CITRATE) [Concomitant]
  5. COUMADIN (WARFARIN SODIUM) [Concomitant]

REACTIONS (1)
  - Feeling abnormal [None]
